FAERS Safety Report 8129799-8 (Version None)
Quarter: 2012Q1

REPORT INFORMATION
  Report Type: 
  Country: None (occurrence: None)
  Receive Date: 20120210
  Receipt Date: 20120210
  Transmission Date: 20120608
  Serious: Yes (Life-Threatening)
  Sender: FDA-Public Use
  Company Number: None

PATIENT
  Sex: Male
  Weight: 81.3 kg

DRUGS (12)
  1. MORPHINE [Concomitant]
     Route: 042
  2. ONDANSETRON [Concomitant]
     Route: 042
  3. CLOPIDOGREL [Concomitant]
     Route: 048
  4. MIDAZOLAM [Concomitant]
     Route: 042
  5. ASPIRIN [Concomitant]
  6. ANGIOMAX [Concomitant]
     Dosage: 12 ML
     Route: 040
  7. NITROGLYCERIN 5MCG/MIN [Concomitant]
     Route: 042
  8. ANGIOMAX [Suspect]
     Indication: ACUTE MYOCARDIAL INFARCTION
     Dosage: 28 ML
     Route: 041
     Dates: start: 20120204, end: 20120204
  9. FENTANYL CITRATE [Concomitant]
     Route: 042
  10. IOPAMIDOL [Concomitant]
  11. TERAZOSIN HCL [Concomitant]
  12. HEPARIN [Concomitant]

REACTIONS (2)
  - CHEST PAIN [None]
  - THROMBOSIS IN DEVICE [None]
